FAERS Safety Report 15179229 (Version 2)
Quarter: 2018Q3

REPORT INFORMATION
  Report Type: Report from Study
  Country: CA (occurrence: CA)
  Receive Date: 20180723
  Receipt Date: 20180728
  Transmission Date: 20181010
  Serious: Yes (Death)
  Sender: FDA-Public Use
  Company Number: CA-HLSUS-2018-CA-001108

PATIENT
  Sex: Male

DRUGS (2)
  1. CLOZARIL [Suspect]
     Active Substance: CLOZAPINE
     Indication: SCHIZOPHRENIA
     Dosage: 300MG 9 AM, 400MG QHS
     Route: 048
     Dates: start: 19970320, end: 20180608
  2. FLUOXETINE [Concomitant]
     Active Substance: FLUOXETINE HYDROCHLORIDE
     Indication: DEPRESSION
     Dosage: 60MG
     Route: 048
     Dates: start: 1995, end: 20180608

REACTIONS (4)
  - Immunodeficiency [Unknown]
  - Haematological malignancy [Unknown]
  - Disease complication [Unknown]
  - Pneumonia [Fatal]
